FAERS Safety Report 5393866-2 (Version None)
Quarter: 2007Q3

REPORT INFORMATION
  Report Type: 
  Country: None (occurrence: None)
  Receive Date: 20070723
  Receipt Date: 20070713
  Transmission Date: 20080115
  Serious: Yes (Life-Threatening)
  Sender: FDA-Public Use
  Company Number: B0477851A

PATIENT
  Age: 24 Year
  Sex: Male

DRUGS (4)
  1. PAXIL [Suspect]
     Indication: DEPRESSION
     Route: 048
     Dates: start: 20070308
  2. NORITREN [Concomitant]
     Route: 048
  3. DOGMATYL [Concomitant]
     Route: 065
  4. TOLEDOMIN [Concomitant]
     Route: 048

REACTIONS (1)
  - SUICIDE ATTEMPT [None]
